FAERS Safety Report 8311372-X (Version None)
Quarter: 2012Q2

REPORT INFORMATION
  Report Type: 
  Country: None (occurrence: None)
  Receive Date: 20120425
  Receipt Date: 20120420
  Transmission Date: 20120825
  Serious: Yes (Hospitalization, Other)
  Sender: FDA-Public Use
  Company Number: CHPA2012US009202

PATIENT
  Sex: Female

DRUGS (2)
  1. PREVACID 24 HR [Suspect]
     Dosage: 30 MG, QD
     Route: 048
  2. PREVACID 24 HR [Suspect]
     Indication: HIATUS HERNIA
     Dosage: 15 MG, QD
     Route: 048

REACTIONS (7)
  - HAEMATEMESIS [None]
  - FAECES DISCOLOURED [None]
  - INCORRECT DRUG ADMINISTRATION DURATION [None]
  - WRONG TECHNIQUE IN DRUG USAGE PROCESS [None]
  - HAEMATOCHEZIA [None]
  - OFF LABEL USE [None]
  - OVERDOSE [None]
